FAERS Safety Report 9377068 (Version 1)
Quarter: 2013Q2

REPORT INFORMATION
  Report Type: Spontaneous
  Country: US (occurrence: None)
  Receive Date: 20130628
  Receipt Date: 20130628
  Transmission Date: 20140414
  Serious: No
  Sender: FDA-Public Use
  Company Number: None

PATIENT
  Age: 48 Year
  Sex: Female
  Weight: 58.51 kg

DRUGS (5)
  1. TIROSINT [Suspect]
     Indication: HYPOTHYROIDISM
     Dosage: 1 CAPSULE
     Route: 048
     Dates: start: 20130608, end: 20130612
  2. FERMENTED COD LIVER OIL [Concomitant]
  3. VIT D (ERGOCALCIFEROL CAPS) [Concomitant]
  4. MAGNESIUM [Concomitant]
  5. ADRENAL HEALTH SUPPLEMENT [Concomitant]

REACTIONS (22)
  - Diarrhoea [None]
  - Mood altered [None]
  - Crying [None]
  - Asthenia [None]
  - Headache [None]
  - Pyrexia [None]
  - Chest pain [None]
  - Chest discomfort [None]
  - Feeling abnormal [None]
  - Body temperature fluctuation [None]
  - Fatigue [None]
  - Sensory disturbance [None]
  - Increased appetite [None]
  - Depressed mood [None]
  - Flushing [None]
  - Insomnia [None]
  - Throat tightness [None]
  - Oropharyngeal pain [None]
  - Dysphonia [None]
  - Headache [None]
  - Abdominal pain upper [None]
  - Sensation of foreign body [None]
